FAERS Safety Report 17840132 (Version 1)
Quarter: 2020Q2

REPORT INFORMATION
  Report Type: Spontaneous
  Country: PT (occurrence: PT)
  Receive Date: 20200529
  Receipt Date: 20200529
  Transmission Date: 20200714
  Serious: Yes (Death, Hospitalization)
  Sender: FDA-Public Use
  Company Number: PT-STRIDES ARCOLAB LIMITED-2020SP006481

PATIENT
  Age: 46 Year
  Sex: Female

DRUGS (4)
  1. PREDNISOLONE. [Suspect]
     Active Substance: PREDNISOLONE
     Indication: LANGERHANS^ CELL HISTIOCYTOSIS
  2. PREDNISOLONE. [Suspect]
     Active Substance: PREDNISOLONE
     Indication: HYPERSENSITIVITY PNEUMONITIS
     Dosage: 10 MILLIGRAM PER DAY
     Route: 065
  3. MYCOPHENOLATE MOFETIL. [Suspect]
     Active Substance: MYCOPHENOLATE MOFETIL
     Indication: HYPERSENSITIVITY PNEUMONITIS
     Dosage: UNK
     Route: 065
  4. MYCOPHENOLATE MOFETIL. [Suspect]
     Active Substance: MYCOPHENOLATE MOFETIL
     Indication: LANGERHANS^ CELL HISTIOCYTOSIS

REACTIONS (10)
  - Bronchial anastomosis complication [Unknown]
  - Bone lesion [Unknown]
  - Off label use [Unknown]
  - Respiratory failure [Fatal]
  - Septic shock [Fatal]
  - Lung adenocarcinoma stage IV [Unknown]
  - Back pain [Unknown]
  - Resorption bone increased [Unknown]
  - Pulmonary fibrosis [Unknown]
  - Respiratory tract infection [Unknown]
